FAERS Safety Report 5755734-3 (Version None)
Quarter: 2008Q2

REPORT INFORMATION
  Report Type: 
  Country: None (occurrence: None)
  Receive Date: 20080528
  Receipt Date: 20080516
  Transmission Date: 20081010
  Serious: Yes (Hospitalization)
  Sender: FDA-Public Use
  Company Number: OMPQ-NO-0805S-0337

PATIENT
  Age: 71 Year
  Sex: Male

DRUGS (6)
  1. OMNIPAQUE 240 [Suspect]
     Indication: DRUG USE FOR UNKNOWN INDICATION
     Dosage: 100 ML, SINGLE DOSE, I.V.
     Route: 042
     Dates: start: 20080429, end: 20080429
  2. WARFARIN SODIUM [Concomitant]
  3. DIGOXIN [Concomitant]
  4. ADALAT [Concomitant]
  5. ACETYLSALICYLIC ACID (BAYASPIRIN) [Concomitant]
  6. SIMVASTATIN (LIPOVAS) [Concomitant]

REACTIONS (6)
  - DRUG ERUPTION [None]
  - ECZEMA [None]
  - ERYTHEMA MULTIFORME [None]
  - GLOSSITIS [None]
  - PRURITUS [None]
  - RASH [None]
